FAERS Safety Report 5356172-8 (Version None)
Quarter: 2007Q2

REPORT INFORMATION
  Report Type: 
  Country: None (occurrence: None)
  Receive Date: 20070612
  Receipt Date: 20070531
  Transmission Date: 20071010
  Serious: Yes (Hospitalization, Other)
  Sender: FDA-Public Use
  Company Number: BR-PFIZER INC-2007046120

PATIENT
  Sex: Female

DRUGS (6)
  1. LIPITOR [Suspect]
     Indication: DYSLIPIDAEMIA
     Route: 048
  2. FRONTAL [Suspect]
     Route: 048
  3. MODURETIC 5-50 [Concomitant]
     Route: 048
  4. CARDIZEM [Concomitant]
     Route: 048
     Dates: start: 19990101
  5. STUGERON [Concomitant]
     Route: 048
     Dates: start: 19970101
  6. BETAHISTINE [Concomitant]
     Route: 048
     Dates: start: 19970101

REACTIONS (6)
  - BLOOD CHOLESTEROL ABNORMAL [None]
  - CHOLELITHIASIS [None]
  - DRUG DEPENDENCE [None]
  - HELICOBACTER INFECTION [None]
  - OSTEOPOROSIS [None]
  - VOMITING [None]
